FAERS Safety Report 20821727 (Version 1)
Quarter: 2022Q2

REPORT INFORMATION
  Report Type: Report from Study
  Country: US (occurrence: US)
  Receive Date: 20220512
  Receipt Date: 20220512
  Transmission Date: 20220720
  Serious: Yes (Other)
  Sender: FDA-Public Use
  Company Number: US-TEVA-2022-US-2034862

PATIENT
  Age: 51 Year
  Sex: Female

DRUGS (2)
  1. VALPROATE [Suspect]
     Active Substance: VALPROIC ACID
     Indication: Migraine
     Route: 065
  2. VALPROATE [Suspect]
     Active Substance: VALPROIC ACID
     Indication: Drug therapy

REACTIONS (1)
  - Drug-induced liver injury [Recovered/Resolved]
